FAERS Safety Report 8777559 (Version 1)
Quarter: 2012Q4

REPORT INFORMATION
  Report Type: 
  Country: US (occurrence: US)
  Receive Date: 20120911
  Receipt Date: 20120911
  Transmission Date: 20130627
  Serious: Yes (Other)
  Sender: FDA-Public Use
  Company Number: PHEH2012US017584

PATIENT
  Sex: Female

DRUGS (3)
  1. MYFORTIC [Suspect]
     Dosage: 2 DF, BID (360 mg 2 tablets BID)
  2. CYTOXAN [Concomitant]
  3. RITUXIMAB [Concomitant]

REACTIONS (4)
  - Systemic lupus erythematosus [Unknown]
  - Lupus endocarditis [Unknown]
  - Ovarian mass [Unknown]
  - Pneumonia [Unknown]
